FAERS Safety Report 14664232 (Version 1)
Quarter: 2018Q1

REPORT INFORMATION
  Report Type: Spontaneous
  Country: DE (occurrence: DE)
  Receive Date: 20180321
  Receipt Date: 20180321
  Transmission Date: 20180509
  Serious: Yes (Death, Other)
  Sender: FDA-Public Use
  Company Number: DE-ABBVIE-18P-062-2293862-00

PATIENT
  Sex: Male

DRUGS (1)
  1. VENCLYXTO [Suspect]
     Active Substance: VENETOCLAX
     Indication: MALIGNANT MAST CELL NEOPLASM
     Route: 048

REACTIONS (2)
  - Malignant mast cell neoplasm [Fatal]
  - Off label use [Unknown]
